FAERS Safety Report 5832081-2 (Version None)
Quarter: 2008Q3

REPORT INFORMATION
  Report Type: 
  Country: None (occurrence: None)
  Receive Date: 20080804
  Receipt Date: 20080730
  Transmission Date: 20090109
  Serious: Yes (Death)
  Sender: FDA-Public Use
  Company Number: GB-TEVA-159975ISR

PATIENT
  Age: 51 Year
  Sex: Male
  Weight: 73.3 kg

DRUGS (2)
  1. CLOMIPRAMINE HCL [Suspect]
     Route: 048
     Dates: start: 20061201
  2. CLOZAPINE [Suspect]
     Indication: SCHIZOAFFECTIVE DISORDER
     Route: 048
     Dates: start: 20000101

REACTIONS (2)
  - CONSTIPATION [None]
  - RESPIRATORY FAILURE [None]
